FAERS Safety Report 12696020 (Version 1)
Quarter: 2016Q3

REPORT INFORMATION
  Report Type: Report from Study
  Country: US (occurrence: US)
  Receive Date: 20160829
  Receipt Date: 20160829
  Transmission Date: 20161109
  Serious: No
  Sender: FDA-Public Use
  Company Number: US-ALEXZA PHARMACEUTICALS, INC-1056855

PATIENT
  Sex: Male
  Weight: 84 kg

DRUGS (1)
  1. ADASUVE [Suspect]
     Active Substance: LOXAPINE
     Route: 055
     Dates: start: 20160815, end: 20160815

REACTIONS (2)
  - Cough [Recovered/Resolved]
  - Dyspnoea [Recovered/Resolved]

NARRATIVE: CASE EVENT DATE: 20160815
